FAERS Safety Report 21638782 (Version 6)
Quarter: 2023Q2

REPORT INFORMATION
  Report Type: Spontaneous
  Country: US (occurrence: US)
  Receive Date: 20221124
  Receipt Date: 20230621
  Transmission Date: 20230722
  Serious: No
  Sender: FDA-Public Use
  Company Number: US-PFIZER INC-PV202200108319

PATIENT
  Age: 43 Year
  Sex: Male

DRUGS (3)
  1. NYVEPRIA [Suspect]
     Active Substance: PEGFILGRASTIM-APGF
     Indication: Keratinising squamous cell carcinoma of nasopharynx
     Dosage: 6 MG, EVERY 3 WEEKS (EVERY 21 DAYS)
     Route: 058
  2. NYVEPRIA [Suspect]
     Active Substance: PEGFILGRASTIM-APGF
     Dosage: 6000 MG, EVERY 3 WEEKS (EVERY 21 DAYS)
  3. NYVEPRIA [Suspect]
     Active Substance: PEGFILGRASTIM-APGF
     Dosage: 6 MG, CYCLIC (6MG SUBCUTANEOUSLY ONCE/INSTRUCTION: ADMINISTER ONCE PER CYCLE AT LEAST 24 HOURS AFTER
     Route: 058

REACTIONS (2)
  - Nausea [Unknown]
  - Product prescribing error [Unknown]
